FAERS Safety Report 8725050 (Version 2)
Quarter: 2013Q1

REPORT INFORMATION
  Report Type: Spontaneous
  Country: US (occurrence: US)
  Receive Date: 20120815
  Receipt Date: 20130108
  Transmission Date: 20140127
  Serious: No
  Sender: FDA-Public Use
  Company Number: US-ASTRAZENECA-2012SE55887

PATIENT
  Age: 80 Year
  Sex: Female

DRUGS (1)
  1. SYMBICORT PMDI [Suspect]
     Dosage: 80 MCG / 4.5 MCG UNKNOWN
     Route: 055

REACTIONS (4)
  - Oropharyngeal discomfort [Unknown]
  - Throat irritation [Unknown]
  - Drug dose omission [Unknown]
  - Drug ineffective [Unknown]
